FAERS Safety Report 25995725 (Version 1)
Quarter: 2025Q4

REPORT INFORMATION
  Report Type: Spontaneous
  Country: US (occurrence: None)
  Receive Date: 20251104
  Receipt Date: 20251104
  Transmission Date: 20260118
  Serious: Yes (Hospitalization)
  Sender: FDA-CTU
  Company Number: None

PATIENT
  Age: 73 Year
  Sex: Male

DRUGS (3)
  1. TERIPARATIDE [Suspect]
     Active Substance: TERIPARATIDE
     Indication: Product used for unknown indication
     Dosage: 20 ML DAILY SUBCUTANEOUS
     Route: 058
     Dates: start: 20240816
  2. TERIPARATIDE [Concomitant]
     Active Substance: TERIPARATIDE
  3. GATTEX [Concomitant]
     Active Substance: TEDUGLUTIDE\WATER

REACTIONS (1)
  - Intestinal obstruction [None]

NARRATIVE: CASE EVENT DATE: 20250922
